FAERS Safety Report 8085366-6 (Version None)
Quarter: 2012Q1

REPORT INFORMATION
  Report Type: 
  Country: None (occurrence: None)
  Receive Date: 20120128
  Receipt Date: 20110415
  Transmission Date: 20120608
  Serious: Yes (Hospitalization)
  Sender: FDA-Public Use
  Company Number: US-ABBOTT-10P-163-0692842-00

PATIENT
  Sex: Female
  Weight: 68.1 kg

DRUGS (8)
  1. NUVARING [Concomitant]
     Indication: PRODUCT USED FOR UNKNOWN INDICATION
  2. OMNICEF [Suspect]
     Indication: PRODUCT USED FOR UNKNOWN INDICATION
     Dates: start: 20101216
  3. MULTI-VITAMINS [Concomitant]
     Indication: PRODUCT USED FOR UNKNOWN INDICATION
     Dosage: DAILY
  4. HUMIRA [Suspect]
     Indication: CROHN'S DISEASE
     Dates: start: 20101101
  5. LEXAPRO [Concomitant]
     Indication: DEPRESSION
  6. SUPPLEMENTS [Concomitant]
     Indication: PRODUCT USED FOR UNKNOWN INDICATION
     Dosage: DAILY
  7. HUMIRA [Suspect]
     Dates: start: 20110312
  8. AUGMENTIN '125' [Suspect]
     Indication: PRODUCT USED FOR UNKNOWN INDICATION
     Dates: start: 20101201, end: 20101216

REACTIONS (8)
  - DIARRHOEA [None]
  - DEHYDRATION [None]
  - TONSILLITIS [None]
  - NASOPHARYNGITIS [None]
  - PARANASAL SINUS HYPERSECRETION [None]
  - NASAL CONGESTION [None]
  - SINUSITIS [None]
  - COUGH [None]
